FAERS Safety Report 22195054 (Version 1)
Quarter: 2023Q2

REPORT INFORMATION
  Report Type: Spontaneous
  Country: US (occurrence: None)
  Receive Date: 20230411
  Receipt Date: 20230411
  Transmission Date: 20230722
  Serious: Yes (Other)
  Sender: FDA-Public Use
  Company Number: US-ROCHE-3256361

PATIENT
  Sex: Male

DRUGS (1)
  1. HEMLIBRA [Suspect]
     Active Substance: EMICIZUMAB-KXWH
     Indication: Factor VIII deficiency
     Route: 065

REACTIONS (5)
  - Vocal cord disorder [Unknown]
  - Laryngeal oedema [Unknown]
  - Aphonia [Unknown]
  - Streptococcal infection [Unknown]
  - Gastrooesophageal reflux disease [Unknown]
